FAERS Safety Report 7744041-5 (Version None)
Quarter: 2011Q3

REPORT INFORMATION
  Report Type: 
  Country: None (occurrence: None)
  Receive Date: 20110825
  Receipt Date: 20110817
  Transmission Date: 20111222
  Serious: Yes (Other)
  Sender: FDA-Public Use
  Company Number: DSA_47421_2011

PATIENT
  Sex: Female

DRUGS (5)
  1. LEVOTHYROXINE SODIUM [Concomitant]
  2. BUPROPION HYDROCHLORIDE [Suspect]
     Indication: BIPOLAR DISORDER
     Dosage: 150 MG QD ORAL
     Route: 048
     Dates: start: 20110713, end: 20110725
  3. VALPROATE SODIUM [Concomitant]
  4. SEROQUEL [Concomitant]
  5. KLIMADYNON [Concomitant]

REACTIONS (1)
  - PSORIASIS [None]
